FAERS Safety Report 7465144-9 (Version None)
Quarter: 2011Q2

REPORT INFORMATION
  Report Type: 
  Country: None (occurrence: None)
  Receive Date: 20110509
  Receipt Date: 20110427
  Transmission Date: 20111010
  Serious: Yes (Life-Threatening, Hospitalization)
  Sender: FDA-Public Use
  Company Number: JP-JNJFOC-20110411533

PATIENT
  Age: 79 Year
  Sex: Female
  Weight: 55 kg

DRUGS (10)
  1. ALFAROL [Concomitant]
     Indication: OSTEOPOROSIS
     Route: 048
  2. URSO 250 [Concomitant]
     Indication: PRODUCT USED FOR UNKNOWN INDICATION
     Route: 065
  3. UNKNOWN MEDICATION [Concomitant]
     Indication: HEADACHE
     Route: 048
  4. GALANTAMINE HYDROBROMIDE [Suspect]
     Indication: DEMENTIA ALZHEIMER'S TYPE
     Route: 048
  5. UNKNOWN MEDICATION [Concomitant]
     Route: 065
  6. UNKNOWN MEDICATION [Concomitant]
     Indication: MUSCULOSKELETAL STIFFNESS
     Route: 048
  7. NASONEX [Concomitant]
     Indication: RHINITIS ALLERGIC
     Route: 045
  8. INTAL [Concomitant]
     Indication: RHINITIS ALLERGIC
     Route: 031
  9. ANTIPLATELETS [Concomitant]
     Route: 065
  10. ALLEGRA [Concomitant]
     Indication: RHINITIS ALLERGIC
     Route: 048

REACTIONS (1)
  - SUBARACHNOID HAEMORRHAGE [None]
